FAERS Safety Report 4309032-5 (Version None)
Quarter: 2004Q1

REPORT INFORMATION
  Report Type: 
  Country: None (occurrence: None)
  Receive Date: 20040301
  Receipt Date: 20030804
  Transmission Date: 20041129
  Serious: Yes (Other)
  Sender: FDA-Public Use
  Company Number: 03-08-0950

PATIENT
  Age: 53 Year
  Sex: Female
  Weight: 60.782 kg

DRUGS (4)
  1. HYDROCHLOROTHIAZIDE TAB [Suspect]
     Indication: HYPERTENSION
     Dosage: ORAL
     Route: 048
  2. ISOPTIN SR [Suspect]
  3. MAVIK [Concomitant]
  4. TARKA [Concomitant]

REACTIONS (2)
  - DYSPNOEA [None]
  - URTICARIA [None]
